FAERS Safety Report 6647553-0 (Version None)
Quarter: 2010Q1

REPORT INFORMATION
  Report Type: 
  Country: None (occurrence: None)
  Receive Date: 20100323
  Receipt Date: 20100323
  Transmission Date: 20100710
  Serious: Yes (Hospitalization)
  Sender: FDA-Public Use
  Company Number: None

PATIENT
  Age: 72 Year
  Sex: Male
  Weight: 88.41 kg

DRUGS (1)
  1. SIMVASTATIN [Suspect]
     Dosage: 40 MG AT BEDTIME PO
     Route: 048
     Dates: start: 20080317, end: 20081006

REACTIONS (1)
  - MYALGIA [None]
